FAERS Safety Report 9820406 (Version 2)
Quarter: 2014Q1

REPORT INFORMATION
  Report Type: Spontaneous
  Country: US (occurrence: None)
  Receive Date: 20140114
  Receipt Date: 20140127
  Transmission Date: 20141002
  Serious: Yes (Life-Threatening, Hospitalization)
  Sender: FDA-Public Use
  Company Number: AUR-APL-2014-00238

PATIENT
  Age: 81 Year
  Sex: Male
  Weight: 67.57 kg

DRUGS (2)
  1. ALFUZOSIN [Suspect]
     Indication: BENIGN PROSTATIC HYPERPLASIA
     Route: 048
     Dates: start: 2009, end: 2013
  2. TOVIAZ [Suspect]
     Indication: PROSTATIC DISORDER
     Route: 048
     Dates: start: 2009, end: 20140114

REACTIONS (13)
  - Prostatic disorder [None]
  - Condition aggravated [None]
  - Feeling abnormal [None]
  - Skin irritation [None]
  - Pruritus [None]
  - Insomnia [None]
  - Drug ineffective [None]
  - Dysuria [None]
  - Urinary incontinence [None]
  - Pollakiuria [None]
  - Blood urine present [None]
  - Dyspnoea [None]
  - Incorrect product storage [None]
